FAERS Safety Report 26123735 (Version 2)
Quarter: 2025Q4

REPORT INFORMATION
  Report Type: Spontaneous
  Country: EU (occurrence: EU)
  Receive Date: 20251205
  Receipt Date: 20251223
  Transmission Date: 20260117
  Serious: Yes (Other)
  Sender: ALKEM
  Company Number: None

PATIENT
  Age: 8 Year
  Sex: Female

DRUGS (2)
  1. MYCOPHENOLATE MOFETIL [Suspect]
     Active Substance: MYCOPHENOLATE MOFETIL
     Indication: STING-associated vasculopathy with onset in infancy
     Dosage: UNK
     Route: 065
  2. RUXOLITINIB [Suspect]
     Active Substance: RUXOLITINIB
     Indication: STING-associated vasculopathy with onset in infancy
     Dosage: UNK
     Route: 065

REACTIONS (2)
  - Lymphadenitis [Unknown]
  - Atypical mycobacterial infection [Unknown]
